FAERS Safety Report 5095198-9 (Version None)
Quarter: 2006Q3

REPORT INFORMATION
  Report Type: 
  Country: None (occurrence: None)
  Receive Date: 20060901
  Receipt Date: 20060724
  Transmission Date: 20061208
  Serious: Yes (Other)
  Sender: FDA-Public Use
  Company Number: FR-GLAXOSMITHKLINE-B0431965A

PATIENT
  Age: 58 Year
  Sex: Female

DRUGS (3)
  1. AVANDAMET [Suspect]
     Indication: DIABETES MELLITUS NON-INSULIN-DEPENDENT
     Dosage: 1TAB TWICE PER DAY
     Route: 048
     Dates: start: 20060401
  2. HEMIDAONIL [Suspect]
     Dosage: 1TAB TWICE PER DAY
     Route: 048
  3. DIAMICRON [Concomitant]
     Route: 065

REACTIONS (7)
  - CONSTIPATION [None]
  - FORMICATION [None]
  - HYPOGLYCAEMIA [None]
  - MALAISE [None]
  - OEDEMA [None]
  - TREMOR [None]
  - WEIGHT INCREASED [None]
